FAERS Safety Report 5590340-5 (Version None)
Quarter: 2008Q1

REPORT INFORMATION
  Report Type: 
  Country: None (occurrence: None)
  Receive Date: 20080114
  Receipt Date: 20080109
  Transmission Date: 20080703
  Serious: Yes (Other)
  Sender: FDA-Public Use
  Company Number: GB-RANBAXY-2008RR-12481

PATIENT

DRUGS (6)
  1. SERTRALINE HYDROCHLORIDE [Suspect]
     Dosage: 150 MG, UNK
     Route: 048
     Dates: start: 20071119
  2. VENLAFAXINE HCL [Suspect]
     Dosage: 75 MG, UNK
     Route: 048
     Dates: start: 20071108, end: 20071116
  3. DIAZEPAM TABLETS BP 10MG [Concomitant]
     Dosage: 15 MG, UNK
     Route: 048
     Dates: start: 20071123, end: 20071214
  4. LORAZEPAM [Concomitant]
     Dosage: 4.5 MG, UNK
     Route: 048
     Dates: start: 20071119, end: 20071123
  5. NITRAZEPAM TABLETS BP 5MG [Concomitant]
     Dosage: 5 MG, UNK
     Route: 048
     Dates: start: 20071108, end: 20071119
  6. ZOPICLONE [Concomitant]
     Dosage: 15 MG, UNK
     Route: 048
     Dates: start: 20071119, end: 20071123

REACTIONS (5)
  - ATAXIA [None]
  - COGNITIVE DISORDER [None]
  - COORDINATION ABNORMAL [None]
  - GAIT DISTURBANCE [None]
  - TREMOR [None]
